FAERS Safety Report 18669878 (Version 1)
Quarter: 2020Q4

REPORT INFORMATION
  Report Type: Spontaneous
  Country: US (occurrence: US)
  Receive Date: 20201228
  Receipt Date: 20201228
  Transmission Date: 20210114
  Serious: Yes (Other)
  Sender: FDA-Public Use
  Company Number: US-PFIZER INC-2020510293

PATIENT
  Age: 76 Year
  Weight: 60.15 kg

DRUGS (1)
  1. IBRANCE [Suspect]
     Active Substance: PALBOCICLIB
     Indication: BREAST CANCER
     Dosage: 100 MG (ONE TABLET, 100 MG TABLET, 21 TABLETS)

REACTIONS (4)
  - Cerebral atrophy [Unknown]
  - Weight decreased [Unknown]
  - Memory impairment [Unknown]
  - Body height decreased [Unknown]
